FAERS Safety Report 14265498 (Version 1)
Quarter: 2017Q4

REPORT INFORMATION
  Report Type: Spontaneous
  Country: US (occurrence: US)
  Receive Date: 20171208
  Receipt Date: 20171208
  Transmission Date: 20180321
  Serious: No
  Sender: FDA-Public Use
  Company Number: US-MYLANLABS-2017M1076688

PATIENT
  Age: 64 Year
  Sex: Male
  Weight: 95 kg

DRUGS (4)
  1. MUSE [Suspect]
     Active Substance: ALPROSTADIL
     Indication: ERECTILE DYSFUNCTION
     Dosage: 1000 ?G, PRN
     Route: 066
     Dates: start: 201711
  2. MUSE [Suspect]
     Active Substance: ALPROSTADIL
     Indication: ERECTILE DYSFUNCTION
     Dosage: UNK UNK, PRN
     Route: 066
     Dates: start: 201706
  3. ADVIL [Concomitant]
     Active Substance: IBUPROFEN
     Indication: BACK PAIN
  4. ADVIL [Concomitant]
     Active Substance: IBUPROFEN
     Indication: HEADACHE
     Dosage: UNK
     Dates: start: 201706

REACTIONS (4)
  - Drug ineffective [Unknown]
  - Application site pain [Recovered/Resolved]
  - Incorrect dose administered [Recovered/Resolved]
  - Wrong technique in product usage process [Recovered/Resolved]

NARRATIVE: CASE EVENT DATE: 201706
